FAERS Safety Report 17956231 (Version 1)
Quarter: 2020Q2

REPORT INFORMATION
  Report Type: Other
  Country: CA (occurrence: CA)
  Receive Date: 20200629
  Receipt Date: 20200629
  Transmission Date: 20200714
  Serious: Yes (Death)
  Sender: FDA-Public Use
  Company Number: CA-ACCORD-186241

PATIENT
  Age: 16 Year
  Sex: Female

DRUGS (9)
  1. TACROLIMUS. [Suspect]
     Active Substance: TACROLIMUS
     Indication: PRODUCT USED FOR UNKNOWN INDICATION
     Route: 065
  2. KINERET [Suspect]
     Active Substance: ANAKINRA
     Indication: PRODUCT USED FOR UNKNOWN INDICATION
     Dosage: 100 MG PER SYRINGE SINGLE-USE, PRESERVATIVE-FREE PREFILLED SYRINGES, SOLUTION SUBCUTANEOUS
  3. THALOMID [Suspect]
     Active Substance: THALIDOMIDE
     Indication: PRODUCT USED FOR UNKNOWN INDICATION
     Dosage: NOT SPECIFIED
  4. PREDNISONE. [Concomitant]
     Active Substance: PREDNISONE
     Dosage: NOT SPECIFIED
  5. ETOPOSIDE. [Suspect]
     Active Substance: ETOPOSIDE
     Indication: PRODUCT USED FOR UNKNOWN INDICATION
     Dosage: NOT SPECIFIED
  6. CICLOSPORIN [Suspect]
     Active Substance: CYCLOSPORINE
     Indication: PRODUCT USED FOR UNKNOWN INDICATION
     Dosage: NOT SPECIFIED
  7. INFLIXIMAB [Suspect]
     Active Substance: INFLIXIMAB
     Indication: STILL^S DISEASE
     Dosage: 1 EVERY 1 MONTHS, NOT SPECIFIED
     Route: 042
  8. ERELZI [Suspect]
     Active Substance: ETANERCEPT-SZZS
     Indication: STILL^S DISEASE
     Dosage: STRENGTH: 25 MG SOLUTION FOR INJECTION IN PREFILLED SYRINGE, 1 EVERY 2 WEEKS
     Route: 058
  9. METHOTREXATE. [Suspect]
     Active Substance: METHOTREXATE
     Indication: STILL^S DISEASE
     Dosage: NOT SPECIFIED

REACTIONS (4)
  - Hypotension [Fatal]
  - Complications of bone marrow transplant [Fatal]
  - Tachycardia [Fatal]
  - Hepatosplenic T-cell lymphoma [Fatal]
